FAERS Safety Report 11902740 (Version 4)
Quarter: 2016Q1

REPORT INFORMATION
  Report Type: Report from Study
  Country: US (occurrence: US)
  Receive Date: 20160108
  Receipt Date: 20160111
  Transmission Date: 20160526
  Serious: No
  Sender: FDA-Public Use
  Company Number: US-ABBVIE-15P-163-1524064-00

PATIENT
  Age: 62 Year
  Sex: Male
  Weight: 90.8 kg

DRUGS (4)
  1. RIBASPHERE [Concomitant]
     Active Substance: RIBAVIRIN
     Indication: PRODUCT USED FOR UNKNOWN INDICATION
  2. LASIX [Concomitant]
     Active Substance: FUROSEMIDE
     Indication: PRODUCT USED FOR UNKNOWN INDICATION
  3. ZOFRAN [Concomitant]
     Active Substance: ONDANSETRON HYDROCHLORIDE
     Indication: PRODUCT USED FOR UNKNOWN INDICATION
  4. VIEKIRA PAK [Suspect]
     Active Substance: DASABUVIR\OMBITASVIR\PARITAPREVIR\RITONAVIR
     Indication: HEPATITIS C
     Dosage: 2 PINK 1 BEIGE + 1 BEIGE QHS
     Route: 048
     Dates: start: 20151017

REACTIONS (5)
  - Nausea [Unknown]
  - Vomiting [Unknown]
  - Balance disorder [Unknown]
  - Dizziness [Unknown]
  - Muscular weakness [Unknown]

NARRATIVE: CASE EVENT DATE: 20151017
